FAERS Safety Report 4644432-5 (Version None)
Quarter: 2005Q2

REPORT INFORMATION
  Report Type: 
  Country: None (occurrence: None)
  Receive Date: 20050331
  Receipt Date: 20041206
  Transmission Date: 20051028
  Serious: No
  Sender: FDA-Public Use
  Company Number: 04P-163-0282340-00

PATIENT
  Age: 42 Year
  Sex: Male
  Weight: 118 kg

DRUGS (13)
  1. HUMIRA [Suspect]
     Indication: RHEUMATOID ARTHRITIS
     Dosage: 40 MG, 2 IN 1 M, SUBCUTANEOUS
     Route: 058
     Dates: start: 20040501, end: 20041110
  2. RAMIPRIL [Concomitant]
  3. METHADONE HCL [Concomitant]
  4. FUROSEMIDE [Concomitant]
  5. FOLIC ACID [Concomitant]
  6. HYDROXYCHLOROQUINE PHOSPHATE [Concomitant]
  7. MELOXICAM [Concomitant]
  8. DIAZEPAM [Concomitant]
  9. METOCLOPRAMIDE [Concomitant]
  10. OMEPRAZOLE [Concomitant]
  11. HYDROMORPHONE HYDROCHLORIDE [Concomitant]
  12. CARISOPRODOL [Concomitant]
  13. DYAZIDE [Concomitant]

REACTIONS (1)
  - SKIN LESION [None]
